FAERS Safety Report 5821145-5 (Version None)
Quarter: 2008Q3

REPORT INFORMATION
  Report Type: 
  Country: None (occurrence: None)
  Receive Date: 20080721
  Receipt Date: 20080709
  Transmission Date: 20090109
  Serious: Yes (Hospitalization, Other)
  Sender: FDA-Public Use
  Company Number: 2008AL004308

PATIENT
  Age: 59 Year
  Sex: Male
  Weight: 120.6568 kg

DRUGS (11)
  1. DIGOXIN [Suspect]
     Indication: CARDIOMEGALY
     Dosage: .25MG DAILY PO
     Route: 048
     Dates: start: 20080324, end: 20080417
  2. GLYBURIDE [Concomitant]
  3. COREG [Concomitant]
  4. LISINOPRIL [Concomitant]
  5. LASIX [Concomitant]
  6. POTASSIUM CHLORIDE [Concomitant]
  7. ALLOPURINAL AND SPIRONLAC [Concomitant]
  8. MULTI-VITAMIN [Concomitant]
  9. NIASPAN [Concomitant]
  10. ASPIRIN [Concomitant]
  11. VYTORIN [Concomitant]

REACTIONS (9)
  - ASTHENIA [None]
  - DEHYDRATION [None]
  - DISORIENTATION [None]
  - FALL [None]
  - LOSS OF CONSCIOUSNESS [None]
  - MALAISE [None]
  - RENAL FAILURE [None]
  - THERAPEUTIC AGENT TOXICITY [None]
  - VOMITING [None]
